FAERS Safety Report 8552771-0 (Version None)
Quarter: 2012Q3

REPORT INFORMATION
  Report Type: 
  Country: None (occurrence: None)
  Receive Date: 20120731
  Receipt Date: 20120725
  Transmission Date: 20120928
  Serious: Yes (Hospitalization, Other)
  Sender: FDA-Public Use
  Company Number: PHHY2012BR064793

PATIENT
  Sex: Female

DRUGS (2)
  1. AMLODOPINE BESYLATE AND VALSARTAN [Suspect]
     Indication: BLOOD PRESSURE
     Dosage: 320 MG VALS AND 10 MG AMLO
  2. AMLODOPINE BESYLATE AND VALSARTAN [Suspect]
     Dosage: UNK UKN, UNK

REACTIONS (7)
  - PNEUMONIA [None]
  - ASTHENIA [None]
  - ABDOMINAL DISCOMFORT [None]
  - BLOOD PRESSURE ABNORMAL [None]
  - MALAISE [None]
  - BLOOD PRESSURE DECREASED [None]
  - HYPERHIDROSIS [None]
